FAERS Safety Report 13196558 (Version 1)
Quarter: 2017Q1

REPORT INFORMATION
  Report Type: Spontaneous
  Country: US (occurrence: US)
  Receive Date: 20170207
  Receipt Date: 20170207
  Transmission Date: 20170428
  Serious: Yes (Life-Threatening)
  Sender: FDA-Public Use
  Company Number: None

PATIENT
  Age: 52 Year
  Sex: Female
  Weight: 59.4 kg

DRUGS (2)
  1. LOSINIPRIL [Concomitant]
  2. MELOXICAM 15MG [Suspect]
     Active Substance: MELOXICAM
     Indication: BACK PAIN
     Dosage: ?          QUANTITY:30 TABLET(S);?
     Route: 048
     Dates: start: 20160309, end: 20160311

REACTIONS (7)
  - Oedema peripheral [None]
  - Skin discolouration [None]
  - Blood test abnormal [None]
  - Nausea [None]
  - Heart rate increased [None]
  - Tachycardia [None]
  - Insomnia [None]

NARRATIVE: CASE EVENT DATE: 20160309
